FAERS Safety Report 7780226-X (Version None)
Quarter: 2011Q3

REPORT INFORMATION
  Report Type: 
  Country: None (occurrence: None)
  Receive Date: 20110927
  Receipt Date: 20110602
  Transmission Date: 20111222
  Serious: Yes (Other)
  Sender: FDA-Public Use
  Company Number: US-ASTRAZENECA-2011SE34091

PATIENT
  Age: 53 Year
  Sex: Male

DRUGS (1)
  1. SEROQUEL XR [Suspect]
     Route: 048

REACTIONS (4)
  - CONVULSION [None]
  - DRUG DOSE OMISSION [None]
  - ABNORMAL DREAMS [None]
  - BALANCE DISORDER [None]
